FAERS Safety Report 7597937-1 (Version None)
Quarter: 2011Q3

REPORT INFORMATION
  Report Type: 
  Country: None (occurrence: None)
  Receive Date: 20110708
  Receipt Date: 20110630
  Transmission Date: 20111222
  Serious: Yes (Hospitalization)
  Sender: FDA-Public Use
  Company Number: BE-PFIZER INC-2011147113

PATIENT
  Age: 83 Year
  Sex: Male
  Weight: 71 kg

DRUGS (5)
  1. LENALIDOMIDE [Suspect]
     Dosage: 5 MG, 1X/DAY
     Route: 048
     Dates: start: 20100427, end: 20100430
  2. VELCADE [Suspect]
     Dosage: 1 MG/M2, 1X/DAY
     Route: 042
     Dates: start: 20100427, end: 20100430
  3. MEDROL [Suspect]
     Indication: MULTIPLE MYELOMA
     Dosage: 32 MG, 1X/DAY
     Route: 048
     Dates: start: 20100427
  4. ASAFLOW [Concomitant]
     Indication: PROPHYLAXIS
     Dosage: 80 MG, 1X/DAY
     Route: 048
  5. GASTROGRAFIN [Concomitant]
     Indication: CONSTIPATION
     Dosage: UNK
     Dates: start: 20100130

REACTIONS (4)
  - PLATELET COUNT DECREASED [None]
  - BLOOD CALCIUM INCREASED [None]
  - HAEMOGLOBIN DECREASED [None]
  - FAECALOMA [None]
